FAERS Safety Report 4276474-6 (Version None)
Quarter: 2004Q1

REPORT INFORMATION
  Report Type: 
  Country: None (occurrence: None)
  Receive Date: 20040116
  Receipt Date: 20040107
  Transmission Date: 20041129
  Serious: Yes (Life-Threatening)
  Sender: FDA-Public Use
  Company Number: HQ3327218JUL2002

PATIENT
  Sex: Female

DRUGS (4)
  1. RAPAMUNE [Suspect]
     Indication: IMMUNOSUPPRESSION
     Dosage: SEE IMAGE
     Route: 048
  2. PROGRAF [Suspect]
     Indication: IMMUNOSUPPRESSION
     Dosage: DOSE ADJUSTED TO MAINTAIN A 12 HOUR TROUGH CONCENTRATION OF  3-6 MG/ML,GIVEN TWICE DAILY, ORAL
     Route: 048
  3. ZENAPAX [Suspect]
     Indication: IMMUNOSUPPRESSION
     Dosage: 1 MG/KG 1 X PER 2 WK, INTRAVENOUS
     Route: 042
  4. INSULIN [Concomitant]

REACTIONS (6)
  - ANAEMIA [None]
  - DIARRHOEA [None]
  - MOUTH ULCERATION [None]
  - OEDEMA PERIPHERAL [None]
  - PORTAL VEIN THROMBOSIS [None]
  - RENAL IMPAIRMENT [None]
